FAERS Safety Report 24432453 (Version 2)
Quarter: 2025Q2

REPORT INFORMATION
  Report Type: Report from Study
  Country: CA (occurrence: CA)
  Receive Date: 20241014
  Receipt Date: 20250507
  Transmission Date: 20250717
  Serious: Yes (Other)
  Sender: CELLTRION
  Company Number: CA-CELLTRION INC.-2024CA006149

PATIENT

DRUGS (14)
  1. ADALIMUMAB-AATY [Suspect]
     Active Substance: ADALIMUMAB-AATY
     Indication: Crohn^s disease
     Dosage: 40 MG, EVERY 2 WEEKS/EVERY OTHER WEEK/40 MG 1 EVERY 2 WEEKS
     Route: 058
     Dates: start: 20240102
  2. ADALIMUMAB-AATY [Suspect]
     Active Substance: ADALIMUMAB-AATY
     Dosage: 40 MG, EVERY 2 WEEKS/EVERY OTHER WEEK/40 MG 1 EVERY 2 WEEKS
     Route: 058
     Dates: start: 20240709
  3. CHROMIUM [Concomitant]
     Active Substance: CHROMIC CHLORIDE\CHROMIUM
     Indication: Supplementation therapy
  4. CLOXACILLIN [Concomitant]
     Active Substance: CLOXACILLIN
  5. FOLIC ACID [Concomitant]
     Active Substance: FOLIC ACID
     Indication: Supplementation therapy
  6. FUSIDIC ACID [Concomitant]
     Active Substance: FUSIDIC ACID
     Route: 061
  7. FERROUS BISGLYCINATE [Concomitant]
     Active Substance: FERROUS BISGLYCINATE
     Indication: Supplementation therapy
  8. RETINOL [Concomitant]
     Active Substance: RETINOL
     Indication: Supplementation therapy
  9. VITAMIN C [Concomitant]
     Active Substance: ASCORBIC ACID
     Indication: Supplementation therapy
  10. VITAMIN D NOS [Concomitant]
     Active Substance: CHOLECALCIFEROL\ERGOCALCIFEROL
     Indication: Supplementation therapy
  11. LACTASE [Concomitant]
     Active Substance: LACTASE
     Indication: Supplementation therapy
  12. MITOCHONDRIAL NRG [Concomitant]
     Indication: Supplementation therapy
  13. CLOXACILLIN [Concomitant]
     Active Substance: CLOXACILLIN
  14. FUSIDIC ACID [Concomitant]
     Active Substance: FUSIDIC ACID
     Route: 061

REACTIONS (4)
  - Surgery [Recovering/Resolving]
  - Malaise [Recovering/Resolving]
  - Localised infection [Recovering/Resolving]
  - Intentional dose omission [Recovering/Resolving]

NARRATIVE: CASE EVENT DATE: 20240723
